FAERS Safety Report 15249545 (Version 3)
Quarter: 2018Q4

REPORT INFORMATION
  Report Type: Spontaneous
  Country: IL (occurrence: IL)
  Receive Date: 20180807
  Receipt Date: 20181001
  Transmission Date: 20190204
  Serious: Yes (Other)
  Sender: FDA-Public Use
  Company Number: IL-CELGENEUS-ISR-20180800495

PATIENT
  Age: 72 Year
  Sex: Female

DRUGS (6)
  1. CARTIA [Concomitant]
     Indication: PRODUCT USED FOR UNKNOWN INDICATION
     Route: 048
     Dates: start: 2018
  2. AZACITIDINE. [Suspect]
     Active Substance: AZACITIDINE
     Indication: MYELODYSPLASTIC SYNDROME
     Route: 041
     Dates: start: 20180624, end: 20180723
  3. EUTHREX [Concomitant]
     Indication: HYPOTHYROIDISM
     Route: 048
     Dates: start: 2003
  4. SIMVASTATIN. [Concomitant]
     Active Substance: SIMVASTATIN
     Indication: HYPERCHOLESTEROLAEMIA
     Route: 048
     Dates: start: 2003
  5. EXJADE [Concomitant]
     Active Substance: DEFERASIROX
     Indication: IRON OVERLOAD
     Route: 048
     Dates: start: 2018
  6. OMEPRADEX [Concomitant]
     Active Substance: OMEPRAZOLE
     Indication: PRODUCT USED FOR UNKNOWN INDICATION
     Route: 048
     Dates: start: 2003

REACTIONS (1)
  - Large intestine perforation [Recovered/Resolved]

NARRATIVE: CASE EVENT DATE: 20180723
